FAERS Safety Report 7388075 (Version 11)
Quarter: 2014Q1

REPORT INFORMATION
  Report Type: Spontaneous
  Country: US (occurrence: US)
  Receive Date: 20100514
  Receipt Date: 20140128
  Transmission Date: 20141002
  Serious: Yes (Hospitalization, Other)
  Sender: FDA-Public Use
  Company Number: PHEH2010US03433

PATIENT
  Sex: Male

DRUGS (3)
  1. AREDIA [Suspect]
     Indication: OSTEOPOROSIS
     Route: 042
  2. ZOMETA [Suspect]
     Indication: PLASMA CELL MYELOMA
     Dosage: 4 MG, QMO
     Route: 042
  3. ZOMETA [Suspect]
     Indication: METASTASES TO BONE

REACTIONS (55)
  - Cough [Unknown]
  - Blood urine present [Unknown]
  - Dysphagia [Unknown]
  - Encephalitis [Unknown]
  - Aphasia [Unknown]
  - Somnolence [Unknown]
  - Osteonecrosis of jaw [Unknown]
  - Injury [Unknown]
  - Pain [Unknown]
  - Anhedonia [Unknown]
  - Osteomyelitis [Unknown]
  - Anxiety [Unknown]
  - Bone loss [Unknown]
  - Gingival erythema [Unknown]
  - Swelling face [Unknown]
  - Tooth abscess [Unknown]
  - Gingival swelling [Unknown]
  - Tenderness [Unknown]
  - Exposed bone in jaw [Unknown]
  - Leukopenia [Unknown]
  - Thrombocytopenia [Unknown]
  - Hypertension [Unknown]
  - Upper respiratory tract infection [Unknown]
  - Compression fracture [Unknown]
  - Intervertebral disc degeneration [Unknown]
  - Back pain [Unknown]
  - Musculoskeletal pain [Unknown]
  - Intervertebral disc protrusion [Unknown]
  - Bronchitis [Unknown]
  - Rotator cuff syndrome [Unknown]
  - Synovitis [Unknown]
  - Joint crepitation [Unknown]
  - Bursitis [Unknown]
  - Osteoarthritis [Unknown]
  - Contusion [Unknown]
  - Osteochondrosis [Unknown]
  - Bone fragmentation [Unknown]
  - Ligament rupture [Unknown]
  - Meniscal degeneration [Unknown]
  - Eye swelling [Unknown]
  - Bone pain [Unknown]
  - Sexual dysfunction [Unknown]
  - Anaemia [Unknown]
  - Hyperglycaemia [Unknown]
  - Blood creatinine increased [Unknown]
  - Joint effusion [Unknown]
  - Patellofemoral pain syndrome [Unknown]
  - Arthralgia [Unknown]
  - Oroantral fistula [Unknown]
  - Bone erosion [Unknown]
  - Osteosclerosis [Unknown]
  - Osteopenia [Unknown]
  - Abscess jaw [Unknown]
  - Haemorrhage [Unknown]
  - Oral pain [Unknown]
